FAERS Safety Report 7691936-7 (Version None)
Quarter: 2011Q3

REPORT INFORMATION
  Report Type: 
  Country: None (occurrence: None)
  Receive Date: 20110815
  Receipt Date: 20110803
  Transmission Date: 20111222
  Serious: Yes (Hospitalization, Other)
  Sender: FDA-Public Use
  Company Number: 120780

PATIENT
  Age: 32 Year
  Sex: Female

DRUGS (1)
  1. KETAMINE HCL [Suspect]

REACTIONS (8)
  - EPIGASTRIC DISCOMFORT [None]
  - SUBSTANCE USE [None]
  - SELF-MEDICATION [None]
  - BLOOD ALKALINE PHOSPHATASE INCREASED [None]
  - BILE DUCT STENOSIS [None]
  - WRONG TECHNIQUE IN DRUG USAGE PROCESS [None]
  - GAMMA-GLUTAMYLTRANSFERASE INCREASED [None]
  - BILIARY DILATATION [None]
